FAERS Safety Report 6696409-6 (Version None)
Quarter: 2010Q2

REPORT INFORMATION
  Report Type: 
  Country: None (occurrence: None)
  Receive Date: 20100421
  Receipt Date: 20100412
  Transmission Date: 20101027
  Serious: Yes (Other)
  Sender: FDA-Public Use
  Company Number: B0648031A

PATIENT
  Age: 24 Month
  Sex: Female

DRUGS (6)
  1. AMOXICILLIN TRIHYDRATE + POTASSIUM CLAVULANTE (FORMULATION (AMOX.TRIHY [Suspect]
  2. STEROID [Concomitant]
  3. METHYLPREDNISOLONE [Concomitant]
  4. ALBUMIN (HUMAN) [Concomitant]
  5. FRUSEMIDE [Concomitant]
  6. CYCLOSPORINE [Concomitant]

REACTIONS (9)
  - BLOOD IMMUNOGLOBULIN G DECREASED [None]
  - BLOOD IMMUNOGLOBULIN M DECREASED [None]
  - EOSINOPHILIA [None]
  - HYPERTENSION [None]
  - LEUKOCYTOSIS [None]
  - METABOLIC ACIDOSIS [None]
  - PYREXIA [None]
  - TUBULOINTERSTITIAL NEPHRITIS [None]
  - VOMITING [None]
